FAERS Safety Report 14698759 (Version 1)
Quarter: 2018Q1

REPORT INFORMATION
  Report Type: Spontaneous
  Country: DE (occurrence: DE)
  Receive Date: 20180330
  Receipt Date: 20180330
  Transmission Date: 20180509
  Serious: Yes (Other)
  Sender: FDA-Public Use
  Company Number: DE-LUPIN (EUROPE) LIMITED-2018-02489

PATIENT
  Age: 61 Year
  Sex: Female

DRUGS (2)
  1. QUETIAPIN-HORMOSAN 50 MG RETARDTABLETTEN [Suspect]
     Active Substance: QUETIAPINE FUMARATE
     Indication: BIPOLAR I DISORDER
     Dosage: 50 MG, QD (IN THE EVENING)
     Route: 048
     Dates: start: 201711
  2. QUETIAPIN PUREN [Suspect]
     Active Substance: QUETIAPINE FUMARATE
     Indication: BIPOLAR I DISORDER
     Dosage: 1 DF, IN THE MORNING
     Route: 065
     Dates: start: 201711

REACTIONS (3)
  - Dry mouth [Not Recovered/Not Resolved]
  - Fatigue [Not Recovered/Not Resolved]
  - Extrasystoles [Not Recovered/Not Resolved]

NARRATIVE: CASE EVENT DATE: 201711
